FAERS Safety Report 9990138 (Version 1)
Quarter: 2014Q1

REPORT INFORMATION
  Report Type: Spontaneous
  Country: US (occurrence: US)
  Receive Date: 20140310
  Receipt Date: 20140310
  Transmission Date: 20141002
  Serious: Yes (Hospitalization)
  Sender: FDA-Public Use
  Company Number: US-GLENMARK GENERICS INC.-2014GMK008779

PATIENT
  Age: 47 Year
  Sex: Female
  Weight: 134.24 kg

DRUGS (3)
  1. GABAPENTIN [Suspect]
     Indication: BACK PAIN
     Dosage: 800 MG, BID
     Route: 048
     Dates: start: 2010
  2. GABAPENTIN [Suspect]
     Dosage: 600 MG, QD
     Route: 048
  3. VALIUM                             /00017001/ [Concomitant]
     Indication: CONVULSION
     Dosage: 2 MG, BID

REACTIONS (17)
  - Paralysis [Not Recovered/Not Resolved]
  - Convulsion [Not Recovered/Not Resolved]
  - Back pain [Unknown]
  - Hypokinesia [Unknown]
  - Abnormal sensation in eye [Not Recovered/Not Resolved]
  - Eye discharge [Not Recovered/Not Resolved]
  - Skin exfoliation [Unknown]
  - Hypoaesthesia [Not Recovered/Not Resolved]
  - Urticaria [Unknown]
  - Speech disorder [Not Recovered/Not Resolved]
  - Pain [Not Recovered/Not Resolved]
  - Headache [Not Recovered/Not Resolved]
  - Eye pain [Not Recovered/Not Resolved]
  - Dysphagia [Unknown]
  - Asthenia [Not Recovered/Not Resolved]
  - Paraesthesia [Unknown]
  - Dry mouth [Not Recovered/Not Resolved]
